FAERS Safety Report 18058919 (Version 1)
Quarter: 2020Q3

REPORT INFORMATION
  Report Type: Report from Study
  Country: ES (occurrence: ES)
  Receive Date: 20200723
  Receipt Date: 20200723
  Transmission Date: 20201103
  Serious: Yes (Hospitalization, Other)
  Sender: FDA-Public Use
  Company Number: ES-MYLANLABS-2020M1065092

PATIENT
  Age: 92 Year
  Sex: Female
  Weight: 50 kg

DRUGS (1)
  1. INSULIN GLARGINE [Suspect]
     Active Substance: INSULIN GLARGINE
     Indication: TYPE 2 DIABETES MELLITUS
     Dosage: UNK
     Route: 058
     Dates: start: 202006, end: 20200616

REACTIONS (10)
  - Pulmonary oedema [Unknown]
  - Intentional product misuse [Unknown]
  - Renal failure [Not Recovered/Not Resolved]
  - Discomfort [Unknown]
  - Hypotension [Unknown]
  - Renal disorder [Unknown]
  - Product dose omission issue [Unknown]
  - Syncope [Recovered/Resolved]
  - Unresponsive to stimuli [Recovered/Resolved]
  - Fall [Recovered/Resolved]

NARRATIVE: CASE EVENT DATE: 202006
